FAERS Safety Report 7762338-X (Version None)
Quarter: 2011Q3

REPORT INFORMATION
  Report Type: 
  Country: None (occurrence: None)
  Receive Date: 20110920
  Receipt Date: 20110912
  Transmission Date: 20111222
  Serious: Yes (Hospitalization)
  Sender: FDA-Public Use
  Company Number: US-BAXTER-2011BH029027

PATIENT
  Age: 79 Year
  Sex: Male
  Weight: 100 kg

DRUGS (2)
  1. GAMMAGARD LIQUID [Suspect]
     Indication: OFF LABEL USE
     Route: 042
     Dates: start: 20110719
  2. GAMMAGARD LIQUID [Suspect]
     Indication: MULTIPLE MYELOMA
     Route: 042
     Dates: start: 20110719

REACTIONS (3)
  - CLOSTRIDIUM DIFFICILE COLITIS [None]
  - SKIN ULCER [None]
  - CONDITION AGGRAVATED [None]
